FAERS Safety Report 17485843 (Version 2)
Quarter: 2024Q2

REPORT INFORMATION
  Report Type: Spontaneous
  Country: TR (occurrence: TR)
  Receive Date: 20200302
  Receipt Date: 20240402
  Transmission Date: 20240716
  Serious: Yes (Other)
  Sender: FDA-Public Use
  Company Number: CA-ALKEM LABORATORIES LIMITED-CA-ALKEM-2019-10497

PATIENT
  Age: 26 Year
  Sex: Female

DRUGS (1)
  1. COLCHICINE [Suspect]
     Active Substance: COLCHICINE
     Indication: Suicide attempt
     Dosage: 27.5 MILLIGRAM
     Route: 065

REACTIONS (6)
  - Pancytopenia [Unknown]
  - Overdose [Unknown]
  - Infection [Unknown]
  - Alopecia [Unknown]
  - Diarrhoea [Unknown]
  - Toxicity to various agents [Unknown]
